FAERS Safety Report 24846008 (Version 1)
Quarter: 2025Q1

REPORT INFORMATION
  Report Type: Spontaneous
  Country: US (occurrence: US)
  Receive Date: 20250115
  Receipt Date: 20250115
  Transmission Date: 20250408
  Serious: Yes (Other)
  Sender: FERRING
  Company Number: US-FERRINGPH-2025FE00029

PATIENT

DRUGS (4)
  1. FIRMAGON [Suspect]
     Active Substance: DEGARELIX ACETATE
     Indication: Product used for unknown indication
     Route: 065
  2. NUBEQA [Suspect]
     Active Substance: DAROLUTAMIDE
     Indication: Product used for unknown indication
     Route: 065
  3. PYLARIFY [Concomitant]
     Active Substance: PIFLUFOLASTAT F-18
     Indication: Product used for unknown indication
     Route: 065
  4. ORGOVYX [Concomitant]
     Active Substance: RELUGOLIX
     Indication: Product used for unknown indication
     Route: 065

REACTIONS (1)
  - Tongue neoplasm malignant stage unspecified [Unknown]
